FAERS Safety Report 21708706 (Version 1)
Quarter: 2022Q4

REPORT INFORMATION
  Report Type: Spontaneous
  Country: PT (occurrence: PT)
  Receive Date: 20221210
  Receipt Date: 20221210
  Transmission Date: 20230113
  Serious: Yes (Life-Threatening, Hospitalization)
  Sender: FDA-Public Use
  Company Number: PT-BBM-PT-BBM-202209002

PATIENT
  Age: 91 Year
  Sex: Female

DRUGS (8)
  1. LIDOCAINE [Suspect]
     Active Substance: LIDOCAINE
     Indication: Anaesthesia eye
     Dosage: 2.5 MILLILITER
     Route: 065
  2. ROPIVACAINE [Suspect]
     Active Substance: ROPIVACAINE
     Indication: Anaesthesia eye
     Dosage: 2.5 MILLILITER
     Route: 065
  3. DROPERIDOL [Concomitant]
     Active Substance: DROPERIDOL
     Indication: Analgesic therapy
     Dosage: 0.63 MILLIGRAM
     Route: 065
  4. DROPERIDOL [Concomitant]
     Active Substance: DROPERIDOL
     Indication: Sedative therapy
  5. FENTANYL [Concomitant]
     Active Substance: FENTANYL
     Indication: Analgesic therapy
     Dosage: 20 MICROGRAM
     Route: 065
  6. FENTANYL [Concomitant]
     Active Substance: FENTANYL
     Indication: Sedative therapy
  7. FUROSEMIDE [Concomitant]
     Active Substance: FUROSEMIDE
     Indication: Product used for unknown indication
     Dosage: UNK
     Route: 065
  8. ACETAMINOPHEN [Concomitant]
     Active Substance: ACETAMINOPHEN
     Indication: Product used for unknown indication
     Dosage: UNK (AS NEEDED)
     Route: 065

REACTIONS (1)
  - Anaesthetic complication [Recovered/Resolved]
